FAERS Safety Report 5228263-3 (Version None)
Quarter: 2007Q1

REPORT INFORMATION
  Report Type: 
  Country: None (occurrence: None)
  Receive Date: 20070130
  Receipt Date: 20070116
  Transmission Date: 20070707
  Serious: Yes (Hospitalization)
  Sender: FDA-Public Use
  Company Number: 2006PV019927

PATIENT
  Age: 68 Year
  Sex: Female
  Weight: 78.9259 kg

DRUGS (10)
  1. BYETTA [Suspect]
     Indication: DIABETES MELLITUS NON-INSULIN-DEPENDENT
     Dosage: SEE IMAGE
     Route: 058
     Dates: start: 20050908, end: 20060101
  2. BYETTA [Suspect]
     Indication: DIABETES MELLITUS NON-INSULIN-DEPENDENT
     Dosage: SEE IMAGE
     Route: 058
     Dates: start: 20060101
  3. ASPIRIN [Concomitant]
  4. AVANDAMET [Concomitant]
  5. AVAPRO [Concomitant]
  6. EVISTA [Concomitant]
  7. HUMALOG MIX 75/25 [Concomitant]
  8. NOVOLIN N [Concomitant]
  9. PLAVIX [Concomitant]
  10. TOPROL-XL [Concomitant]

REACTIONS (9)
  - ANAEMIA [None]
  - BLOOD GLUCOSE INCREASED [None]
  - DECREASED APPETITE [None]
  - HUNGER [None]
  - HYPOGLYCAEMIA [None]
  - NASOPHARYNGITIS [None]
  - ORAL INTAKE REDUCED [None]
  - SLUGGISHNESS [None]
  - WEIGHT DECREASED [None]
